FAERS Safety Report 21519782 (Version 2)
Quarter: 2023Q1

REPORT INFORMATION
  Report Type: Spontaneous
  Country: US (occurrence: US)
  Receive Date: 20221028
  Receipt Date: 20230209
  Transmission Date: 20230418
  Serious: Yes (Hospitalization, Other)
  Sender: FDA-Public Use
  Company Number: US-MLMSERVICE-20221010-3845914-1

PATIENT
  Age: 62 Year
  Sex: Female

DRUGS (1)
  1. HEPARIN SODIUM [Suspect]
     Active Substance: HEPARIN SODIUM
     Dosage: UNK (PROPHYLACTIC DOSES)
     Route: 058

REACTIONS (6)
  - Heparin-induced thrombocytopenia [Recovering/Resolving]
  - Pulmonary embolism [Recovering/Resolving]
  - Deep vein thrombosis [Recovering/Resolving]
  - Peripheral artery thrombosis [Recovering/Resolving]
  - Intracardiac thrombus [Recovering/Resolving]
  - Peripheral ischaemia [Recovering/Resolving]
